FAERS Safety Report 5115805-1 (Version None)
Quarter: 2006Q3

REPORT INFORMATION
  Report Type: 
  Country: None (occurrence: None)
  Receive Date: 20060927
  Receipt Date: 20060919
  Transmission Date: 20061208
  Serious: Yes (Other)
  Sender: FDA-Public Use
  Company Number: US-ABBOTT-06P-163-0344187-00

PATIENT
  Age: 8 Month
  Sex: Female
  Weight: 5 kg

DRUGS (7)
  1. SEVOFLURANE [Suspect]
     Indication: INDUCTION OF ANAESTHESIA
     Route: 055
  2. SEVOFLURANE [Suspect]
     Indication: GENERAL ANAESTHESIA
     Route: 055
  3. RANITIDINE HYDROCHLORIDE [Concomitant]
     Indication: DRUG USE FOR UNKNOWN INDICATION
  4. RAGLAN [Concomitant]
     Indication: DRUG USE FOR UNKNOWN INDICATION
  5. POLY-VI-SOL [Concomitant]
     Indication: DRUG USE FOR UNKNOWN INDICATION
  6. OXYGEN [Concomitant]
     Indication: INDUCTION OF ANAESTHESIA
     Route: 055
  7. PROPOFOL [Concomitant]
     Indication: INTUBATION
     Route: 042

REACTIONS (1)
  - HEPATIC FAILURE [None]
